FAERS Safety Report 24278854 (Version 3)
Quarter: 2024Q4

REPORT INFORMATION
  Report Type: Spontaneous
  Country: US (occurrence: US)
  Receive Date: 20240903
  Receipt Date: 20241003
  Transmission Date: 20250115
  Serious: No
  Sender: BIOMARIN
  Company Number: US-SA-SAC20240816001140

PATIENT

DRUGS (1)
  1. LARONIDASE [Suspect]
     Active Substance: LARONIDASE
     Indication: Mucopolysaccharidosis I
     Dosage: 17.4 (UNKNOWN UNITS), QW
     Route: 042
     Dates: start: 200409

REACTIONS (2)
  - Poor venous access [Unknown]
  - Infusion site swelling [Unknown]
